FAERS Safety Report 16013009 (Version 1)
Quarter: 2019Q1

REPORT INFORMATION
  Report Type: Spontaneous
  Country: FR (occurrence: FR)
  Receive Date: 20190227
  Receipt Date: 20190227
  Transmission Date: 20190418
  Serious: Yes (Hospitalization)
  Sender: FDA-Public Use
  Company Number: FR-PFIZER INC-2019079185

PATIENT
  Age: 49 Year
  Sex: Female
  Weight: 65 kg

DRUGS (6)
  1. ALPRAZOLAM. [Suspect]
     Active Substance: ALPRAZOLAM
     Indication: POISONING DELIBERATE
     Dosage: 15 MG, SINGLE
     Route: 048
     Dates: start: 20180922, end: 20180922
  2. METFORMINE [METFORMIN] [Suspect]
     Active Substance: METFORMIN HYDROCHLORIDE
     Indication: POISONING DELIBERATE
     Dosage: 90 G, SINGLE
     Route: 048
     Dates: start: 20180922, end: 20180922
  3. DIAMICRON [Suspect]
     Active Substance: GLICLAZIDE
     Indication: POISONING DELIBERATE
     Dosage: 900 MG, SINGLE
     Route: 048
     Dates: start: 20180922, end: 20180922
  4. JANUVIA [Suspect]
     Active Substance: SITAGLIPTIN PHOSPHATE
     Indication: POISONING DELIBERATE
     Dosage: 2800 MG, SINGLE
     Route: 048
     Dates: start: 20180922, end: 20180922
  5. PARACETAMOL [Suspect]
     Active Substance: ACETAMINOPHEN
     Indication: POISONING DELIBERATE
     Dosage: 24 G, SINGLE
     Route: 048
     Dates: start: 20180922, end: 20180922
  6. ISOPTINE [Suspect]
     Active Substance: VERAPAMIL HYDROCHLORIDE
     Indication: POISONING DELIBERATE
     Dosage: UNK
     Route: 048
     Dates: start: 20180922, end: 20180922

REACTIONS (6)
  - Poisoning deliberate [Recovered/Resolved]
  - Coma [Recovered/Resolved]
  - Hepatocellular injury [Recovered/Resolved]
  - Intentional overdose [Recovered/Resolved]
  - Lactic acidosis [Recovered/Resolved]
  - Hypotension [Recovered/Resolved]

NARRATIVE: CASE EVENT DATE: 20180922
